FAERS Safety Report 6997108-3 (Version None)
Quarter: 2010Q3

REPORT INFORMATION
  Report Type: 
  Country: None (occurrence: None)
  Receive Date: 20100918
  Receipt Date: 20090917
  Transmission Date: 20110219
  Serious: Yes (Hospitalization)
  Sender: FDA-Public Use
  Company Number: US-WYE-H11050609

PATIENT

DRUGS (2)
  1. PRISTIQ [Suspect]
     Dosage: 50 MG, FREQUENCY UNKNOWN
     Route: 048
     Dates: start: 20090701, end: 20090801
  2. AMITRIPTYLINE HCL [Suspect]
     Dosage: 50 MG AT HS
     Dates: start: 20060101, end: 20090801

REACTIONS (1)
  - SEROTONIN SYNDROME [None]
